FAERS Safety Report 13383596 (Version 1)
Quarter: 2017Q1

REPORT INFORMATION
  Report Type: Spontaneous
  Country: US (occurrence: US)
  Receive Date: 20170329
  Receipt Date: 20170329
  Transmission Date: 20170429
  Serious: Yes (Hospitalization, Other)
  Sender: FDA-Public Use
  Company Number: US-JNJFOC-20170330468

PATIENT
  Age: 63 Year
  Sex: Male

DRUGS (8)
  1. METOPROLOL TARTRATE. [Concomitant]
     Active Substance: METOPROLOL TARTRATE
     Indication: CORONARY ARTERY DISEASE
     Route: 065
     Dates: start: 20130112
  2. IMBRUVICA [Suspect]
     Active Substance: IBRUTINIB
     Indication: CHRONIC LYMPHOCYTIC LEUKAEMIA
     Route: 048
     Dates: start: 20160912
  3. MIRTAZAPINE. [Concomitant]
     Active Substance: MIRTAZAPINE
     Indication: DEPRESSION
     Dates: start: 20140522
  4. ELIQUIS [Concomitant]
     Active Substance: APIXABAN
     Indication: ANTICOAGULANT THERAPY
     Dates: start: 20160902
  5. LIPITOR [Concomitant]
     Active Substance: ATORVASTATIN CALCIUM
     Indication: HYPERLIPIDAEMIA
     Route: 065
     Dates: start: 20130112
  6. BACTRIM [Concomitant]
     Active Substance: SULFAMETHOXAZOLE\TRIMETHOPRIM
     Indication: PROPHYLAXIS
     Route: 065
     Dates: start: 20130220
  7. VITAMIN D3 [Concomitant]
     Active Substance: CHOLECALCIFEROL
     Indication: SUPPLEMENTATION THERAPY
     Route: 065
     Dates: start: 20130108
  8. NIACIN. [Concomitant]
     Active Substance: NIACIN
     Indication: HYPERTRIGLYCERIDAEMIA
     Route: 065
     Dates: start: 20141205

REACTIONS (12)
  - Haematemesis [Recovered/Resolved]
  - Nausea [Unknown]
  - Diarrhoea [Unknown]
  - Haematochezia [Recovered/Resolved]
  - Influenza [Unknown]
  - Mallory-Weiss syndrome [Recovered/Resolved]
  - Thrombosis [Unknown]
  - Gastric disorder [Recovered/Resolved]
  - Hiatus hernia [Unknown]
  - Vomiting [Unknown]
  - Pain [Unknown]
  - Bronchitis [Unknown]

NARRATIVE: CASE EVENT DATE: 201609
